FAERS Safety Report 25996677 (Version 1)
Quarter: 2025Q4

REPORT INFORMATION
  Report Type: Spontaneous
  Country: US (occurrence: None)
  Receive Date: 20251104
  Receipt Date: 20251104
  Transmission Date: 20260117
  Serious: Yes (Other)
  Sender: FDA-CTU
  Company Number: None

PATIENT
  Age: 41 Year
  Sex: Male

DRUGS (12)
  1. IBSRELA [Suspect]
     Active Substance: TENAPANOR HYDROCHLORIDE
     Indication: Irritable bowel syndrome
     Dosage: FREQUENCY : TWICE A DAY;?
     Route: 048
     Dates: start: 20250812
  2. CO-O10 1 00MG SOFTGEL CAPSULES [Concomitant]
  3. MAGNESIUM 250MG TABLETS [Concomitant]
  4. MELATONIN 10MG CAPSULES [Concomitant]
  5. OMEGA-3 1 000MG CAPSULES [Concomitant]
  6. VITAMIN D 1,000IU SOFTGELS [Concomitant]
  7. VITAMIN K2100MCG + D3 1000IU TABS [Concomitant]
  8. INSULIN ASPART [Concomitant]
     Active Substance: INSULIN ASPART
  9. DIAZEPAM [Concomitant]
     Active Substance: DIAZEPAM
  10. ROSUVASTATIN [Concomitant]
     Active Substance: ROSUVASTATIN
  11. ONDANSETRON ODT 4 MG [Concomitant]
  12. NURTEC ODT [Concomitant]
     Active Substance: RIMEGEPANT SULFATE

REACTIONS (2)
  - Diarrhoea [None]
  - Drug intolerance [None]

NARRATIVE: CASE EVENT DATE: 20250801
